FAERS Safety Report 20829828 (Version 3)
Quarter: 2022Q4

REPORT INFORMATION
  Report Type: Report from Study
  Country: GB (occurrence: None)
  Receive Date: 20220513
  Receipt Date: 20221013
  Transmission Date: 20230113
  Serious: Yes (Hospitalization)
  Sender: FDA-Public Use
  Company Number: GB-ROCHE-3093426

PATIENT
  Age: 55 Year
  Sex: Male
  Weight: 123 kg

DRUGS (26)
  1. GLOFITAMAB [Suspect]
     Active Substance: GLOFITAMAB
     Indication: Follicular lymphoma stage IV
     Dosage: MOST RECENT DOSE OF GLOFITAMAB 10 MG ()2:10 PM TO 04:40 PM) PRIOR TO AE/SAE?TOTAL VOLUME 50 ML AE/SA
     Route: 042
     Dates: start: 20200304
  2. RITUXIMAB [Suspect]
     Active Substance: RITUXIMAB
     Indication: Follicular lymphoma stage IV
     Dosage: MOST RECENT DOSE OF RITUXIMAB  ADMIN ON 08/MAR/2022 (02:10 PM) PRIOR TO AE/SAE?TOTAL VOLUME 603 ML P
     Route: 041
     Dates: start: 20200206
  3. TOCILIZUMAB [Suspect]
     Active Substance: TOCILIZUMAB
     Indication: Follicular lymphoma stage IV
     Dosage: TOTAL VOLUME 100 ML PRIOR TO AE/SAE
     Route: 041
     Dates: start: 20200312
  4. CYCLOPHOSPHAMIDE [Suspect]
     Active Substance: CYCLOPHOSPHAMIDE
     Indication: Follicular lymphoma stage IV
     Dosage: MOST RECENT DOSE OF CYCLOPHOSPHAMIDE WAS ADMIN ON 24/JUN/2020 (12:30 TO 02:40 PM)
     Route: 042
     Dates: start: 20200206
  5. DOXORUBICIN [Suspect]
     Active Substance: DOXORUBICIN
     Indication: Follicular lymphoma stage IV
     Dosage: TOTAL VOLUME PRIOR TO AE/SAE 30 ML?MOST RECENT DOSE OF DOXORUBICIN WAS ADMIN ON 24/JUN/2020 (12:30 P
     Route: 042
     Dates: start: 20200206
  6. VINCRISTINE [Suspect]
     Active Substance: VINCRISTINE
     Indication: Follicular lymphoma stage IV
     Dosage: MOST RECENT DOSE OF VINCRISTINE WAS ADMIN ON 24/JUN/2020 (12:30 PM TO 01:55 PM)?TOTAL VOLUME PRIOR T
     Route: 042
     Dates: start: 20200206
  7. PREDNISONE [Suspect]
     Active Substance: PREDNISONE
     Indication: Follicular lymphoma stage IV
     Dosage: MOST RECENT DOSE OF PREDNISONE WAS ADMIN ON 06/MAY/2020 (10:45 AM)
     Route: 048
     Dates: start: 20200506
  8. PREDNISOLONE [Suspect]
     Active Substance: PREDNISOLONE
     Indication: Follicular lymphoma stage IV
     Dosage: MOST RECENT DOSE OF PREDNISOLONE WAS ADMIN ON 28/JUN/2020 (50 MG) PRIOR TO AE/SAE
     Route: 048
     Dates: start: 20200206
  9. DOMPERIDONE [Concomitant]
     Active Substance: DOMPERIDONE
     Indication: Nausea
     Dates: start: 20200205
  10. GLICLAZIDE [Concomitant]
     Active Substance: GLICLAZIDE
     Indication: Hyperglycaemia
     Dates: start: 20200422
  11. GLICLAZIDE [Concomitant]
     Active Substance: GLICLAZIDE
     Dates: start: 20200304
  12. MOVICOL [Concomitant]
     Active Substance: POLYETHYLENE GLYCOL 3350\POTASSIUM CHLORIDE\SODIUM BICARBONATE\SODIUM CHLORIDE
     Indication: Constipation
     Dates: start: 20200506
  13. MORPHINE SULFATE [Concomitant]
     Active Substance: MORPHINE SULFATE
     Indication: Bone pain
     Dates: start: 20200506
  14. NOVORAPID [Concomitant]
     Active Substance: INSULIN ASPART
     Indication: Arthralgia
     Dates: start: 20210311
  15. NOVORAPID [Concomitant]
     Active Substance: INSULIN ASPART
     Indication: Diabetes mellitus
     Dates: start: 20210510
  16. ACYCLOVIR [Concomitant]
     Active Substance: ACYCLOVIR
     Route: 048
     Dates: start: 20210111
  17. ACYCLOVIR [Concomitant]
     Active Substance: ACYCLOVIR
     Dates: start: 20200205
  18. OMEPRAZOLE [Concomitant]
     Active Substance: OMEPRAZOLE
     Dates: start: 20200131
  19. ALLOPURINOL [Concomitant]
     Active Substance: ALLOPURINOL
     Dates: start: 20200131
  20. AZITHROMYCIN [Concomitant]
     Active Substance: AZITHROMYCIN
     Dates: start: 20200206
  21. METFORMIN [Concomitant]
     Active Substance: METFORMIN HYDROCHLORIDE
     Indication: Type 2 diabetes mellitus
     Dates: start: 20200214
  22. DEXAMETHASONE [Concomitant]
     Active Substance: DEXAMETHASONE
     Route: 042
     Dates: start: 20220718, end: 20220718
  23. DEXAMETHASONE [Concomitant]
     Active Substance: DEXAMETHASONE
     Route: 042
     Dates: start: 20221003, end: 20221003
  24. ACETAMINOPHEN [Concomitant]
     Active Substance: ACETAMINOPHEN
     Route: 048
     Dates: start: 20220718, end: 20220718
  25. ACETAMINOPHEN [Concomitant]
     Active Substance: ACETAMINOPHEN
     Route: 048
     Dates: start: 20221003, end: 20221003
  26. CHLORPHENIRAMINE MALEATE [Concomitant]
     Active Substance: CHLORPHENIRAMINE MALEATE
     Route: 042
     Dates: start: 20221003, end: 20221003

REACTIONS (1)
  - Nephrolithiasis [Not Recovered/Not Resolved]

NARRATIVE: CASE EVENT DATE: 20220506
